FAERS Safety Report 14103413 (Version 3)
Quarter: 2018Q2

REPORT INFORMATION
  Report Type: Report from Study
  Country: CA (occurrence: CA)
  Receive Date: 20171018
  Receipt Date: 20180523
  Transmission Date: 20180711
  Serious: Yes (Hospitalization, Other)
  Sender: FDA-Public Use
  Company Number: CA-JNJFOC-20171013634

PATIENT
  Sex: Female
  Weight: 77 kg

DRUGS (3)
  1. REMICADE [Suspect]
     Active Substance: INFLIXIMAB
     Indication: CROHN^S DISEASE
     Route: 042
     Dates: start: 20100420
  2. REMICADE [Suspect]
     Active Substance: INFLIXIMAB
     Indication: CROHN^S DISEASE
     Route: 042
     Dates: start: 20100726
  3. REMICADE [Suspect]
     Active Substance: INFLIXIMAB
     Indication: CROHN^S DISEASE
     Route: 042
     Dates: start: 200009

REACTIONS (7)
  - Post procedural infection [Unknown]
  - General physical health deterioration [Not Recovered/Not Resolved]
  - Precancerous cells present [Unknown]
  - Haemorrhoidal haemorrhage [Unknown]
  - Frequent bowel movements [Not Recovered/Not Resolved]
  - Inappropriate schedule of drug administration [Unknown]
  - Intestinal stenosis [Unknown]

NARRATIVE: CASE EVENT DATE: 2018
